FAERS Safety Report 10694215 (Version 2)
Quarter: 2015Q1

REPORT INFORMATION
  Report Type: Spontaneous
  Country: GB (occurrence: GB)
  Receive Date: 20150106
  Receipt Date: 20150219
  Transmission Date: 20150721
  Serious: Yes (Other)
  Sender: FDA-Public Use
  Company Number: GB-ROCHE-1517757

PATIENT
  Sex: Female

DRUGS (1)
  1. HERCEPTIN [Suspect]
     Active Substance: TRASTUZUMAB
     Indication: PRODUCT USED FOR UNKNOWN INDICATION
     Route: 058

REACTIONS (11)
  - Insomnia [Unknown]
  - Depressed mood [Unknown]
  - Arthralgia [Unknown]
  - Systemic lupus erythematosus [Unknown]
  - Onychoclasis [Unknown]
  - Alopecia [Unknown]
  - Nail disorder [Unknown]
  - Asthenia [Unknown]
  - Road traffic accident [Unknown]
  - Dry eye [Unknown]
  - Pain of skin [Unknown]
